APPROVED DRUG PRODUCT: MYAMBUTOL
Active Ingredient: ETHAMBUTOL HYDROCHLORIDE
Strength: 500MG
Dosage Form/Route: TABLET;ORAL
Application: N016320 | Product #004
Applicant: KANCHAN HEALTHCARE INC
Approved: Approved Prior to Jan 1, 1982 | RLD: No | RS: No | Type: DISCN